FAERS Safety Report 20854061 (Version 2)
Quarter: 2022Q3

REPORT INFORMATION
  Report Type: Report from Study
  Country: US (occurrence: US)
  Receive Date: 20220520
  Receipt Date: 20220906
  Transmission Date: 20221026
  Serious: No
  Sender: FDA-Public Use
  Company Number: US-KYOWAKIRIN-2022BKK006233

PATIENT

DRUGS (3)
  1. CRYSVITA [Suspect]
     Active Substance: BUROSUMAB-TWZA
     Indication: Hereditary hypophosphataemic rickets
     Dosage: 30 MG, 1X/2 WEEKS [EVERY 14 DAYS]
     Route: 058
     Dates: start: 20190422
  2. CRYSVITA [Suspect]
     Active Substance: BUROSUMAB-TWZA
     Dosage: 47 MG, 1X/2 WEEKS
     Route: 058
     Dates: start: 20190422
  3. CRYSVITA [Suspect]
     Active Substance: BUROSUMAB-TWZA
     Indication: Hereditary hypophosphataemic rickets
     Dosage: 47 MG, 1X/2 WEEKS
     Route: 058
     Dates: start: 20190422

REACTIONS (3)
  - Blood phosphorus decreased [Unknown]
  - Weight increased [Unknown]
  - Off label use [Unknown]
